FAERS Safety Report 8066577-2 (Version None)
Quarter: 2012Q1

REPORT INFORMATION
  Report Type: 
  Country: None (occurrence: None)
  Receive Date: 20120124
  Receipt Date: 20120117
  Transmission Date: 20120608
  Serious: Yes (Other)
  Sender: FDA-Public Use
  Company Number: PHEH2012US001555

PATIENT
  Sex: Female

DRUGS (3)
  1. ZOMETA [Suspect]
     Indication: BONE DISORDER
     Route: 042
  2. RECLAST [Suspect]
     Indication: BONE DISORDER
  3. FOSAMAX [Suspect]

REACTIONS (1)
  - BREAST CANCER [None]
